FAERS Safety Report 9681378 (Version 4)
Quarter: 2013Q4

REPORT INFORMATION
  Report Type: Spontaneous
  Country: US (occurrence: US)
  Receive Date: 20131111
  Receipt Date: 20131203
  Transmission Date: 20140711
  Serious: Yes (Hospitalization, Other)
  Sender: FDA-Public Use
  Company Number: US-PFIZER INC-2013125153

PATIENT
  Age: 7 Year
  Sex: Male

DRUGS (8)
  1. DILANTIN [Suspect]
     Indication: CONVULSION
     Dosage: 50 MG, 2X/DAY
     Route: 048
     Dates: start: 19940322
  2. DILANTIN [Suspect]
     Dosage: 100 MG, 2X/DAY
     Route: 048
     Dates: start: 19941118
  3. DILANTIN [Suspect]
     Dosage: 150 MG, 2X/DAY
     Route: 048
     Dates: start: 19950314
  4. DILANTIN [Suspect]
     Indication: CONVULSION
     Dosage: 40 MG/HOUR
     Route: 042
     Dates: start: 19940401
  5. DILANTIN-125 [Suspect]
     Indication: CONVULSION
     Dosage: 100 MG, 2X/DAY
     Route: 048
     Dates: start: 19950120
  6. DEPAKENE [Concomitant]
     Indication: CONVULSION
     Dosage: 250 MG / 5 ML
     Route: 048
  7. KLONOPIN [Concomitant]
     Indication: CONVULSION
     Dosage: 0.25 MG, 3X/DAY
     Route: 048
     Dates: start: 19950123
  8. PHENOBARBITAL [Concomitant]
     Indication: CONVULSION
     Dosage: 60 MG, 1X/DAY AT BED TIME
     Route: 048
     Dates: start: 19950320, end: 199504

REACTIONS (1)
  - Stevens-Johnson syndrome [Unknown]
